FAERS Safety Report 10239613 (Version 2)
Quarter: 2014Q3

REPORT INFORMATION
  Report Type: Spontaneous
  Country: US (occurrence: US)
  Receive Date: 20140616
  Receipt Date: 20140724
  Transmission Date: 20150326
  Serious: Yes (Hospitalization, Other)
  Sender: FDA-Public Use
  Company Number: US-PFIZER INC-2014152225

PATIENT
  Sex: Male

DRUGS (1)
  1. ROBITUSSIN COUGH AND CHEST CONGESTION DM MAX [Suspect]
     Active Substance: DEXTROMETHORPHAN HYDROBROMIDE\GUAIFENESIN
     Indication: NASOPHARYNGITIS
     Dosage: UNK, ONCE A DAY
     Dates: start: 20131113, end: 20131115

REACTIONS (10)
  - Dyspnoea [Unknown]
  - Drug ineffective [Unknown]
  - Product physical issue [Unknown]
  - Pleural effusion [Unknown]
  - Bronchitis [Unknown]
  - Poor quality drug administered [Unknown]
  - Pharyngeal oedema [Unknown]
  - Aphagia [Unknown]
  - Infection [Unknown]
  - Cough [Unknown]

NARRATIVE: CASE EVENT DATE: 20131113
